FAERS Safety Report 6305962-3 (Version None)
Quarter: 2009Q3

REPORT INFORMATION
  Report Type: 
  Country: None (occurrence: None)
  Receive Date: 20090812
  Receipt Date: 20090803
  Transmission Date: 20100115
  Serious: Yes (Congenital Anomaly)
  Sender: FDA-Public Use
  Company Number: AU-ASTRAZENECA-2009SE06800

PATIENT
  Age: 0 Week
  Sex: Male
  Weight: 2.1 kg

DRUGS (7)
  1. FELODIPINE [Suspect]
     Route: 064
  2. CAPTOPRIL [Suspect]
     Route: 064
  3. FLOXACILLIN SODIUM [Suspect]
     Route: 064
  4. OXPRENOLOL HYDROCHLORIDE [Suspect]
     Route: 064
  5. PRAZOSIN HYDROCHLORIDE [Suspect]
     Route: 064
  6. CALCITRIOL [Concomitant]
  7. CALCIUM [Concomitant]

REACTIONS (2)
  - DRUG EXPOSURE DURING PREGNANCY [None]
  - VENTRICULAR SEPTAL DEFECT [None]
